FAERS Safety Report 9230387 (Version 1)
Quarter: 2013Q1

REPORT INFORMATION
  Report Type: Spontaneous
  Country: US (occurrence: None)
  Receive Date: 20121031
  Receipt Date: 20121031
  Transmission Date: 20140127
  Serious: No
  Sender: FDA-Public Use
  Company Number: PHEH2012US013750

PATIENT
  Age: 42 Year
  Sex: Female
  Weight: 86.2 kg

DRUGS (8)
  1. GILENYA (FTY)CAPSULE, 0.5MG [Suspect]
     Indication: MULTIPLE SCLEROSIS
     Route: 048
     Dates: start: 20120213
  2. LOSARTAN (LOSARTAN) [Concomitant]
  3. MELOXICAM (MELOXICAM) [Concomitant]
  4. AMITRIPTYLINE (AMITRIPTYLINE) [Concomitant]
  5. SOMA (CARISOPRODOL) [Concomitant]
  6. LORTAB (HYDROCODONE BITARTRATE, PARACETAMOL) [Concomitant]
  7. KLONOPIN (CLONAZEPAM) (TABLETS) [Concomitant]
  8. CYMBALTA (DULOXETINE HYDROCHLORIDE) [Concomitant]

REACTIONS (1)
  - Rash pruritic [None]
